FAERS Safety Report 8200068-0 (Version None)
Quarter: 2012Q1

REPORT INFORMATION
  Report Type: 
  Country: None (occurrence: None)
  Receive Date: 20120306
  Receipt Date: 20120221
  Transmission Date: 20120608
  Serious: Yes (Hospitalization, Other)
  Sender: FDA-Public Use
  Company Number: CIP11002265

PATIENT
  Age: 61 Year
  Sex: Female

DRUGS (32)
  1. ACTONEL [Suspect]
     Dosage: 35 MG ONCE WEEKLY, ORAL
     Route: 048
     Dates: start: 20030516, end: 20090801
  2. RECLAST [Suspect]
     Dosage: 5 MG ONCE ONLY, INTRAVENOUS
     Route: 042
     Dates: start: 20090828, end: 20090828
  3. ZOVIRAX /00587301 (ACICLOVIR) [Concomitant]
  4. VITAMIN A /00056001/ (RETINOL) [Concomitant]
  5. VITAMIN E /00110501/ (TOCOPHEROL) [Concomitant]
  6. PROTONIX [Concomitant]
  7. FOSAMAX [Suspect]
     Indication: OSTEOPOROSIS
     Dosage: ORAL 10 MG, ORAL 70 MG, ORAL
     Route: 048
     Dates: start: 20000401, end: 20010427
  8. FOSAMAX [Suspect]
     Indication: OSTEOPENIA
     Dosage: ORAL 10 MG, ORAL 70 MG, ORAL
     Route: 048
     Dates: start: 20000401, end: 20010427
  9. FOSAMAX [Suspect]
     Indication: PROPHYLAXIS
     Dosage: ORAL 10 MG, ORAL 70 MG, ORAL
     Route: 048
     Dates: start: 20000401, end: 20010427
  10. FOSAMAX [Suspect]
     Indication: OSTEOPOROSIS PROPHYLAXIS
     Dosage: ORAL 10 MG, ORAL 70 MG, ORAL
     Route: 048
     Dates: start: 20000401, end: 20010427
  11. FOSAMAX [Suspect]
     Indication: OSTEOPOROSIS
     Dosage: ORAL 10 MG, ORAL 70 MG, ORAL
     Route: 048
     Dates: start: 20010427, end: 20030516
  12. FOSAMAX [Suspect]
     Indication: OSTEOPENIA
     Dosage: ORAL 10 MG, ORAL 70 MG, ORAL
     Route: 048
     Dates: start: 20010427, end: 20030516
  13. FOSAMAX [Suspect]
     Indication: PROPHYLAXIS
     Dosage: ORAL 10 MG, ORAL 70 MG, ORAL
     Route: 048
     Dates: start: 20010427, end: 20030516
  14. FOSAMAX [Suspect]
     Indication: OSTEOPOROSIS PROPHYLAXIS
     Dosage: ORAL 10 MG, ORAL 70 MG, ORAL
     Route: 048
     Dates: start: 20010427, end: 20030516
  15. FOSAMAX [Suspect]
     Indication: OSTEOPOROSIS
     Dosage: ORAL 10 MG, ORAL 70 MG, ORAL
     Route: 048
     Dates: end: 20090101
  16. FOSAMAX [Suspect]
     Indication: OSTEOPENIA
     Dosage: ORAL 10 MG, ORAL 70 MG, ORAL
     Route: 048
     Dates: end: 20090101
  17. FOSAMAX [Suspect]
     Indication: PROPHYLAXIS
     Dosage: ORAL 10 MG, ORAL 70 MG, ORAL
     Route: 048
     Dates: end: 20090101
  18. FOSAMAX [Suspect]
     Indication: OSTEOPOROSIS PROPHYLAXIS
     Dosage: ORAL 10 MG, ORAL 70 MG, ORAL
     Route: 048
     Dates: end: 20090101
  19. VITAMIN B COMPLEX (CITAMIN B COMPLEX) [Concomitant]
  20. CALCIUM CARBONATE [Concomitant]
  21. CYCLOBENZAPRINE [Concomitant]
  22. CELEBREX [Concomitant]
  23. VITAMIN C /0008001/ (ASCORBIC ACID) [Concomitant]
  24. ALL OTHER NON-THERAPEUTIC PRODUCTS [Concomitant]
  25. VITAMIN D /00318501/ [Concomitant]
  26. MAGNESIUM (MAGNESIUM) [Concomitant]
  27. RANTIDINE (RANITIDINE HYDORCHLORIDE) [Concomitant]
  28. HYDROCODONE BITARTRATE [Concomitant]
  29. GINKO BILOBA (GINKGO BILOBA) [Concomitant]
  30. SMZ-TMP (SULFAMETHOXAZOLE, TRIMETHOPRIM) [Concomitant]
  31. ZOLPIDEM [Concomitant]
  32. AMBIEN [Concomitant]

REACTIONS (13)
  - OEDEMA PERIPHERAL [None]
  - TRAUMATIC FRACTURE [None]
  - BONE METABOLISM DISORDER [None]
  - BONE DISORDER [None]
  - FRACTURE DISPLACEMENT [None]
  - GAIT DISTURBANCE [None]
  - STRESS FRACTURE [None]
  - LOW TURNOVER OSTEOPATHY [None]
  - PAIN IN EXTREMITY [None]
  - PATHOLOGICAL FRACTURE [None]
  - FEMUR FRACTURE [None]
  - FALL [None]
  - CONDITION AGGRAVATED [None]
